FAERS Safety Report 15488236 (Version 1)
Quarter: 2018Q4

REPORT INFORMATION
  Report Type: Spontaneous
  Country: US (occurrence: US)
  Receive Date: 20181011
  Receipt Date: 20181011
  Transmission Date: 20190205
  Serious: No
  Sender: FDA-Public Use
  Company Number: US-MYLANLABS-2018M1070812

PATIENT
  Sex: Female
  Weight: 64 kg

DRUGS (1)
  1. EMSAM [Suspect]
     Active Substance: SELEGILINE
     Indication: DEPRESSION
     Dosage: UNK
     Route: 062

REACTIONS (4)
  - Product quality issue [Unknown]
  - Application site erythema [Recovering/Resolving]
  - Product adhesion issue [Unknown]
  - Weight decreased [Not Recovered/Not Resolved]
